FAERS Safety Report 25284446 (Version 1)
Quarter: 2025Q2

REPORT INFORMATION
  Report Type: Report from Study
  Country: CA (occurrence: CA)
  Receive Date: 20250508
  Receipt Date: 20250508
  Transmission Date: 20250717
  Serious: Yes (Hospitalization)
  Sender: ABBVIE
  Company Number: CA-ABBVIE-6268408

PATIENT
  Age: 72 Year
  Sex: Male

DRUGS (26)
  1. VENETOCLAX [Suspect]
     Active Substance: VENETOCLAX
     Indication: Acute myeloid leukaemia
     Route: 048
     Dates: start: 20240311, end: 202404
  2. VENETOCLAX [Suspect]
     Active Substance: VENETOCLAX
     Indication: Acute myeloid leukaemia
     Route: 048
     Dates: start: 20240405, end: 20240502
  3. VENETOCLAX [Suspect]
     Active Substance: VENETOCLAX
     Indication: Acute myeloid leukaemia
     Dosage: VENETOCLAX WAS GIVEN IN-PATIENT FROM MAY 4-7  2024
     Route: 048
     Dates: start: 20240504, end: 20240507
  4. VENETOCLAX [Suspect]
     Active Substance: VENETOCLAX
     Indication: Acute myeloid leukaemia
     Dosage: PATIENT WAS HOSPITALIZED FROM 14-16 JUNE, 2024, HENCE THEY STOPPED THIS  MEDICATION DURING THIS  ...
     Route: 048
     Dates: start: 20240508, end: 20240613
  5. VENETOCLAX [Suspect]
     Active Substance: VENETOCLAX
     Indication: Acute myeloid leukaemia
     Route: 048
     Dates: start: 20240619, end: 20240624
  6. PIPERACILLIN AND TAZOBACTAM [Concomitant]
     Active Substance: PIPERACILLIN SODIUM\TAZOBACTAM SODIUM
     Indication: Febrile neutropenia
     Route: 042
     Dates: start: 20240627, end: 20240707
  7. PIPERACILLIN AND TAZOBACTAM [Concomitant]
     Active Substance: PIPERACILLIN SODIUM\TAZOBACTAM SODIUM
     Indication: Febrile neutropenia
     Route: 042
     Dates: start: 20240504, end: 20240507
  8. PIPERACILLIN AND TAZOBACTAM [Concomitant]
     Active Substance: PIPERACILLIN SODIUM\TAZOBACTAM SODIUM
     Indication: Febrile neutropenia
     Route: 042
     Dates: start: 20240710, end: 20240710
  9. PANTOPRAZOLE [Concomitant]
     Active Substance: PANTOPRAZOLE
     Indication: Gastrointestinal haemorrhage
     Route: 042
     Dates: start: 20240614, end: 20240615
  10. PANTOPRAZOLE [Concomitant]
     Active Substance: PANTOPRAZOLE
     Indication: Gastrointestinal haemorrhage
     Route: 048
     Dates: start: 20240616, end: 20240716
  11. PANTOPRAZOLE [Concomitant]
     Active Substance: PANTOPRAZOLE
     Indication: Gastrointestinal haemorrhage
     Route: 048
     Dates: start: 20240717, end: 20240720
  12. VORICONAZOLE [Concomitant]
     Active Substance: VORICONAZOLE
     Indication: Febrile neutropenia
     Dosage: DOSAGE: 200 MG
     Route: 048
     Dates: start: 20240504, end: 20240507
  13. ALLOPURINOL [Concomitant]
     Active Substance: ALLOPURINOL
     Indication: Prophylaxis
     Route: 048
     Dates: start: 20240131, end: 20240204
  14. TRANEXAMIC ACID [Concomitant]
     Active Substance: TRANEXAMIC ACID
     Indication: Gastrointestinal haemorrhage
     Route: 048
     Dates: start: 20240614, end: 20240616
  15. AZITHROMYCIN [Concomitant]
     Active Substance: AZITHROMYCIN
     Indication: Pneumonia
     Route: 048
     Dates: start: 20240627, end: 20240627
  16. AZITHROMYCIN [Concomitant]
     Active Substance: AZITHROMYCIN
     Indication: Pneumonia
     Route: 048
     Dates: start: 20240628, end: 20240701
  17. COVID-19 vaccine mRNA [Concomitant]
     Indication: COVID-19 immunisation
  18. COVID-19 vaccine mRNA [Concomitant]
     Indication: COVID-19 immunisation
  19. COVID-19 vaccine mRNA [Concomitant]
     Indication: COVID-19 immunisation
  20. COVID-19 vaccine mRNA [Concomitant]
     Indication: COVID-19 immunisation
  21. COVID-19 vaccine mRNA [Concomitant]
     Indication: COVID-19 immunisation
  22. COVID-19 vaccine mRNA [Concomitant]
     Indication: COVID-19 immunisation
  23. COVID-19 vaccine mRNA [Concomitant]
     Indication: COVID-19 immunisation
  24. AZACITIDINE [Suspect]
     Active Substance: AZACITIDINE
     Indication: Acute myeloid leukaemia
     Route: 065
     Dates: start: 20240311, end: 20240317
  25. AZACITIDINE [Suspect]
     Active Substance: AZACITIDINE
     Indication: Acute myeloid leukaemia
     Route: 065
     Dates: start: 20240408, end: 20240414
  26. AZACITIDINE [Suspect]
     Active Substance: AZACITIDINE
     Indication: Acute myeloid leukaemia
     Route: 065
     Dates: start: 20240506, end: 20240512

REACTIONS (1)
  - Hypokalaemia [Recovered/Resolved]

NARRATIVE: CASE EVENT DATE: 20240702
